FAERS Safety Report 9678359 (Version 1)
Quarter: 2013Q4

REPORT INFORMATION
  Report Type: Spontaneous
  Country: US (occurrence: US)
  Receive Date: 20131108
  Receipt Date: 20131108
  Transmission Date: 20140711
  Serious: No
  Sender: FDA-Public Use
  Company Number: US-UPSHER-SMITH LABORATORIES, INC.-13002563

PATIENT
  Age: 68 Year
  Sex: Female

DRUGS (6)
  1. JANTOVEN [Suspect]
     Indication: THROMBOSIS PROPHYLAXIS
     Dosage: 2.5 MG, ON SU, T, TH, SA
     Route: 048
     Dates: start: 20130213, end: 20130716
  2. JANTOVEN [Suspect]
     Dosage: 2.5 MG, ON M, W, F
     Route: 048
     Dates: start: 20130717
  3. JANTOVEN [Suspect]
     Indication: THROMBOSIS PROPHYLAXIS
     Dosage: 5 MG, ON M, W, F
     Route: 048
     Dates: start: 20130213, end: 20130716
  4. JANTOVEN [Suspect]
     Dosage: 5 MG, ON SU, T, TH, SA
     Route: 048
     Dates: start: 20130717
  5. XANAX [Suspect]
     Indication: ANXIETY
     Dosage: 0.25 MG, QD
     Route: 048
     Dates: end: 201306
  6. PERCOCET                           /00446701/ [Concomitant]
     Dosage: UNK, PRN

REACTIONS (3)
  - Alopecia [Not Recovered/Not Resolved]
  - International normalised ratio decreased [Unknown]
  - Drug interaction [Unknown]
